FAERS Safety Report 17338734 (Version 1)
Quarter: 2020Q1

REPORT INFORMATION
  Report Type: Spontaneous
  Country: US (occurrence: US)
  Receive Date: 20200129
  Receipt Date: 20200129
  Transmission Date: 20200409
  Serious: No
  Sender: FDA-Public Use
  Company Number: US-ALLERGAN-1911676US

PATIENT
  Age: 56 Year
  Sex: Female

DRUGS (2)
  1. PRED FORTE [Concomitant]
     Active Substance: PREDNISOLONE ACETATE
     Indication: PROPHYLAXIS AGAINST TRANSPLANT REJECTION
     Dosage: UNK
  2. PREDNISOLONE ACETATE, 1.0% [Suspect]
     Active Substance: PREDNISOLONE ACETATE
     Indication: PROPHYLAXIS AGAINST TRANSPLANT REJECTION
     Dosage: UNK
     Route: 047
     Dates: end: 201903

REACTIONS (2)
  - Visual impairment [Unknown]
  - Eye disorder [Unknown]

NARRATIVE: CASE EVENT DATE: 201903
